FAERS Safety Report 6291809-0 (Version None)
Quarter: 2009Q3

REPORT INFORMATION
  Report Type: 
  Country: None (occurrence: None)
  Receive Date: 20090729
  Receipt Date: 20090713
  Transmission Date: 20100115
  Serious: Yes (Other)
  Sender: FDA-Public Use
  Company Number: US-DEXPHARM-20090994

PATIENT
  Age: 82 Year
  Sex: Male

DRUGS (7)
  1. OMEPRAZOLE [Suspect]
     Indication: DUODENAL ULCER
     Dosage: 40 MG ONCE A DAY
  2. OMEPRAZOLE [Suspect]
     Indication: DUODENAL ULCER
  3. COUMADIN [Concomitant]
  4. DIGOXIN [Concomitant]
  5. FUROSEMIDE [Concomitant]
  6. PAROXETINE [Concomitant]
  7. SIMVASTATIN [Concomitant]

REACTIONS (2)
  - COLITIS COLLAGENOUS [None]
  - DIVERTICULUM [None]
